FAERS Safety Report 19414303 (Version 1)
Quarter: 2021Q2

REPORT INFORMATION
  Report Type: Spontaneous
  Country: FR (occurrence: FR)
  Receive Date: 20210614
  Receipt Date: 20210614
  Transmission Date: 20210717
  Serious: Yes (Hospitalization)
  Sender: FDA-Public Use
  Company Number: FR-OTSUKA-2021_019521

PATIENT
  Age: 40 Year
  Sex: Female

DRUGS (1)
  1. ABILIFY [Suspect]
     Active Substance: ARIPIPRAZOLE
     Indication: BIPOLAR DISORDER
     Dosage: 20 MG, QD
     Route: 048
     Dates: start: 202010

REACTIONS (5)
  - Product use in unapproved indication [Unknown]
  - General physical health deterioration [Unknown]
  - Treatment noncompliance [Unknown]
  - Fatigue [Unknown]
  - Weight increased [Unknown]
